FAERS Safety Report 6301964-1 (Version None)
Quarter: 2009Q3

REPORT INFORMATION
  Report Type: 
  Country: None (occurrence: None)
  Receive Date: 20090807
  Receipt Date: 20090731
  Transmission Date: 20100115
  Serious: Yes (Other)
  Sender: FDA-Public Use
  Company Number: PHEH2009US08625

PATIENT
  Sex: Male

DRUGS (2)
  1. COMTAN [Suspect]
     Indication: PARKINSON'S DISEASE
     Dosage: UNK
  2. SINEMET [Concomitant]
     Dosage: UNK
     Dates: start: 20061101

REACTIONS (3)
  - FAILURE TO THRIVE [None]
  - VISUAL IMPAIRMENT [None]
  - WEIGHT DECREASED [None]
